FAERS Safety Report 8302892-2 (Version None)
Quarter: 2012Q2

REPORT INFORMATION
  Report Type: 
  Country: None (occurrence: None)
  Receive Date: 20120420
  Receipt Date: 20120417
  Transmission Date: 20120825
  Serious: Yes (Death, Hospitalization)
  Sender: FDA-Public Use
  Company Number: BE-AMGEN-BELSP2012006593

PATIENT
  Age: 84 Year
  Sex: Male
  Weight: 91 kg

DRUGS (12)
  1. ANTIPSORIATICS FOR SYTEMIC USE [Concomitant]
  2. VALPROATE SODIUM [Concomitant]
  3. ARANESP [Suspect]
     Indication: ANAEMIA
     Dosage: 40 MUG, QWK
     Route: 058
     Dates: start: 20110629
  4. BUMETANIDE [Concomitant]
     Dosage: 2.5 MG, QD
     Dates: start: 20110629
  5. ALLOPURINOL [Concomitant]
     Dosage: 100 MG, QD
  6. CINNARIZINE [Concomitant]
     Dosage: 75 MG, QD
  7. ARANESP [Suspect]
     Dosage: 20 MUG, QWK
     Dates: start: 20110527, end: 20110629
  8. FEROGRAD [Concomitant]
     Dosage: 500 MG, QD
  9. DURAGESIC-100 [Concomitant]
     Dosage: 12.5 MUG, UNK
  10. GLURENORM [Concomitant]
     Dosage: 30 MG, TID
     Dates: end: 20110719
  11. ASPIRIN [Concomitant]
     Dosage: D
  12. BUMETANIDE [Concomitant]
     Dosage: 1 MG, QD
     Dates: end: 20110629

REACTIONS (9)
  - CONVULSION [None]
  - ALTERED STATE OF CONSCIOUSNESS [None]
  - MYOCLONUS [None]
  - STATUS EPILEPTICUS [None]
  - SUICIDE ATTEMPT [None]
  - PNEUMONIA ASPIRATION [None]
  - SOMNOLENCE [None]
  - BALANCE DISORDER [None]
  - FALL [None]
